FAERS Safety Report 23931905 (Version 2)
Quarter: 2024Q2

REPORT INFORMATION
  Report Type: Spontaneous
  Country: IL (occurrence: IL)
  Receive Date: 20240603
  Receipt Date: 20240605
  Transmission Date: 20240715
  Serious: Yes (Hospitalization, Other)
  Sender: FDA-Public Use
  Company Number: IL-BAYER-2024A077264

PATIENT
  Age: 90 Year
  Sex: Female

DRUGS (1)
  1. EYLEA [Suspect]
     Active Substance: AFLIBERCEPT
     Indication: Product used for unknown indication
     Dosage: BOTH EYES EVERY 12 WEEKS , SOLUTION FOR INJECTION IN PRE-FILLED SYRINGE , 40MG/ML
     Dates: start: 20240502

REACTIONS (4)
  - Visual impairment [Unknown]
  - Vitrectomy [Unknown]
  - Endophthalmitis [Unknown]
  - Eye inflammation [Unknown]

NARRATIVE: CASE EVENT DATE: 20240513
